FAERS Safety Report 18403523 (Version 1)
Quarter: 2020Q4

REPORT INFORMATION
  Report Type: Spontaneous
  Country: US (occurrence: US)
  Receive Date: 20201019
  Receipt Date: 20201019
  Transmission Date: 20210114
  Serious: No
  Sender: FDA-Public Use
  Company Number: None

PATIENT
  Sex: Female

DRUGS (1)
  1. OCREVUS [Suspect]
     Active Substance: OCRELIZUMAB

REACTIONS (6)
  - Nervous system disorder [None]
  - Condition aggravated [None]
  - Magnetic resonance imaging abnormal [None]
  - Inappropriate schedule of product administration [None]
  - Sensory disturbance [None]
  - Plasma cell myeloma [None]
